FAERS Safety Report 6289457-1 (Version None)
Quarter: 2009Q3

REPORT INFORMATION
  Report Type: 
  Country: None (occurrence: None)
  Receive Date: 20090728
  Receipt Date: 20090728
  Transmission Date: 20100115
  Serious: Yes (Hospitalization, Other)
  Sender: FDA-Public Use
  Company Number: None

PATIENT
  Age: 37 Year
  Sex: Female
  Weight: 61.4 kg

DRUGS (1)
  1. SULFAMETHOXAZOLE AND TRIMETHOPRIM [Suspect]
     Dosage: BID PO
     Route: 048
     Dates: start: 20090701, end: 20090714

REACTIONS (2)
  - DECREASED APPETITE [None]
  - STEVENS-JOHNSON SYNDROME [None]
